FAERS Safety Report 24639499 (Version 3)
Quarter: 2025Q3

REPORT INFORMATION
  Report Type: Report from Study
  Country: US (occurrence: US)
  Receive Date: 20241119
  Receipt Date: 20250702
  Transmission Date: 20251020
  Serious: Yes (Other)
  Sender: ABBVIE
  Company Number: US-ABBVIE-5965871

PATIENT
  Sex: Female

DRUGS (1)
  1. HUMIRA [Suspect]
     Active Substance: ADALIMUMAB
     Indication: Rheumatoid arthritis
     Route: 058
     Dates: start: 20230111

REACTIONS (15)
  - Chronic kidney disease [Recovering/Resolving]
  - Depression [Recovering/Resolving]
  - Seasonal allergy [Recovering/Resolving]
  - Rheumatoid arthritis [Recovering/Resolving]
  - Fall [Recovering/Resolving]
  - Back pain [Recovering/Resolving]
  - Limb injury [Recovering/Resolving]
  - Perforated ulcer [Recovered/Resolved]
  - Osteoporosis [Recovering/Resolving]
  - Oral lichen planus [Recovering/Resolving]
  - Coeliac disease [Recovering/Resolving]
  - Myocardial infarction [Recovered/Resolved]
  - Pain in extremity [Recovering/Resolving]
  - COVID-19 [Recovered/Resolved]
  - Cerebrovascular accident [Recovering/Resolving]

NARRATIVE: CASE EVENT DATE: 20240901
